FAERS Safety Report 7059848-X (Version None)
Quarter: 2010Q4

REPORT INFORMATION
  Report Type: 
  Country: None (occurrence: None)
  Receive Date: 20101025
  Receipt Date: 20101011
  Transmission Date: 20110411
  Serious: Yes (Other)
  Sender: FDA-Public Use
  Company Number: PHHY2010CN68709

PATIENT
  Age: 60 Year
  Sex: Male

DRUGS (1)
  1. CARBAMAZEPINE [Suspect]
     Indication: TRIGEMINAL NEURALGIA
     Dosage: 0.2 G, TID

REACTIONS (3)
  - APATHY [None]
  - HYPONATRAEMIA [None]
  - SOMNOLENCE [None]
